FAERS Safety Report 17266368 (Version 3)
Quarter: 2020Q2

REPORT INFORMATION
  Report Type: Other
  Country: GB (occurrence: GB)
  Receive Date: 20200114
  Receipt Date: 20200518
  Transmission Date: 20200713
  Serious: No
  Sender: FDA-Public Use
  Company Number: GB-LUPIN PHARMACEUTICALS INC.-2019-03358

PATIENT
  Sex: Female

DRUGS (2)
  1. QUETIAPINE TABLETS [Suspect]
     Active Substance: QUETIAPINE
     Indication: PRODUCT USED FOR UNKNOWN INDICATION
     Dosage: 600 MILLIGRAM, QD (ONE IN THE MORNING AND TWO AT NIGHT)
     Route: 048
     Dates: start: 20190411
  2. QUETIAPINE TABLETS [Suspect]
     Active Substance: QUETIAPINE
     Dosage: 400 MILLIGRAM, BID, MORNING AND EVENING
     Route: 048

REACTIONS (4)
  - Malaise [Unknown]
  - Product dispensing error [Unknown]
  - Dizziness [Unknown]
  - Accidental overdose [Unknown]

NARRATIVE: CASE EVENT DATE: 20190411
